FAERS Safety Report 23743543 (Version 2)
Quarter: 2024Q3

REPORT INFORMATION
  Report Type: Report from Study
  Country: CA (occurrence: CA)
  Receive Date: 20240415
  Receipt Date: 20240904
  Transmission Date: 20241017
  Serious: Yes (Other)
  Sender: JOHNSON AND JOHNSON
  Company Number: CA-JNJFOC-20240436775

PATIENT
  Age: 65 Year
  Sex: Female

DRUGS (1)
  1. SIMPONI [Suspect]
     Active Substance: GOLIMUMAB
     Indication: Rheumatoid arthritis
     Route: 058

REACTIONS (2)
  - Pneumonia [Unknown]
  - Sinusitis [Unknown]
